FAERS Safety Report 5132122-4 (Version None)
Quarter: 2006Q4

REPORT INFORMATION
  Report Type: 
  Country: None (occurrence: None)
  Receive Date: 20061017
  Receipt Date: 20061006
  Transmission Date: 20070319
  Serious: Yes (Hospitalization)
  Sender: FDA-Public Use
  Company Number: 230853

PATIENT
  Age: 13 Year
  Sex: Female
  Weight: 48.4 kg

DRUGS (4)
  1. NUTROPIN [Suspect]
     Indication: PITUITARY HYPOPLASIA
     Dosage: 2.5 MG, 7/WEEK, SUBCUTANEOUS
     Route: 058
     Dates: start: 19990323
  2. CORTEF [Concomitant]
  3. DDVAP (DESMOPRESSIN ACETATE) [Concomitant]
  4. SYNTHROID [Concomitant]

REACTIONS (1)
  - GASTROENTERITIS [None]
